FAERS Safety Report 7344124-8 (Version None)
Quarter: 2011Q1

REPORT INFORMATION
  Report Type: 
  Country: None (occurrence: None)
  Receive Date: 20110310
  Receipt Date: 20100624
  Transmission Date: 20110831
  Serious: No
  Sender: FDA-Public Use
  Company Number: A0866899A

PATIENT
  Age: 36 Year
  Sex: Male

DRUGS (1)
  1. NICORETTE (MINT) [Suspect]
     Dates: start: 20100624, end: 20100624

REACTIONS (2)
  - NAUSEA [None]
  - DIZZINESS [None]
